FAERS Safety Report 7038040-9 (Version None)
Quarter: 2010Q4

REPORT INFORMATION
  Report Type: 
  Country: None (occurrence: None)
  Receive Date: 20101011
  Receipt Date: 20100930
  Transmission Date: 20110411
  Serious: Yes (Hospitalization, Congenital Anomaly, Other)
  Sender: FDA-Public Use
  Company Number: US-PFIZER INC-2008054872

PATIENT
  Sex: Female
  Weight: 3.2 kg

DRUGS (1)
  1. ZOLOFT [Suspect]
     Dosage: 100 MG, UNK
     Route: 064

REACTIONS (5)
  - ATRIAL SEPTAL DEFECT [None]
  - CARDIOMEGALY [None]
  - DRUG EXPOSURE DURING PREGNANCY [None]
  - HAEMANGIOMA [None]
  - MITRAL VALVE DISEASE [None]
